FAERS Safety Report 9714135 (Version 1)
Quarter: 2013Q4

REPORT INFORMATION
  Report Type: Spontaneous
  Country: US (occurrence: US)
  Receive Date: 20131126
  Receipt Date: 20131126
  Transmission Date: 20140711
  Serious: No
  Sender: FDA-Public Use
  Company Number: US-GILEAD-2008-0018817

PATIENT
  Age: 52 Year
  Sex: Female
  Weight: 74.39 kg

DRUGS (9)
  1. LETAIRIS [Suspect]
     Indication: PULMONARY ARTERIAL HYPERTENSION
     Route: 048
     Dates: start: 20081016
  2. LETAIRIS [Suspect]
     Indication: SCLERODERMA
  3. SYNTHROID [Concomitant]
  4. PRILOSEC [Concomitant]
  5. ASA FREE [Concomitant]
  6. LASIX [Concomitant]
  7. CITRACAL [Concomitant]
  8. K-DUR [Concomitant]
  9. TRAVATAN [Concomitant]

REACTIONS (1)
  - Oedema peripheral [None]
